FAERS Safety Report 5211896-8 (Version None)
Quarter: 2006Q4

REPORT INFORMATION
  Report Type: 
  Country: None (occurrence: None)
  Receive Date: 20061101
  Receipt Date: 20060807
  Transmission Date: 20070319
  Serious: No
  Sender: FDA-Public Use
  Company Number: 2006PV019028

PATIENT
  Age: 62 Year
  Sex: Male
  Weight: 170.0989 kg

DRUGS (4)
  1. SYMLIN [Suspect]
     Indication: DIABETES MELLITUS NON-INSULIN-DEPENDENT
     Dosage: SEE IMAGE
     Route: 058
  2. LANTUS [Concomitant]
  3. HUMALOG [Concomitant]
  4. NOVOLOG [Concomitant]

REACTIONS (4)
  - DERMAL CYST [None]
  - DYSGEUSIA [None]
  - NAUSEA [None]
  - WEIGHT DECREASED [None]
